FAERS Safety Report 12223178 (Version 1)
Quarter: 2016Q1

REPORT INFORMATION
  Report Type: Spontaneous
  Country: US (occurrence: US)
  Receive Date: 20160330
  Receipt Date: 20160330
  Transmission Date: 20160526
  Serious: Yes (Other)
  Sender: FDA-Public Use
  Company Number: US-MDT-ADR-2016-00593

PATIENT
  Age: 45 Year
  Sex: Male

DRUGS (2)
  1. MORPHINE DRUG, UNKNOWN [Suspect]
     Active Substance: MORPHINE
     Route: 037
  2. COMPOUNDED BACLOFEN [Suspect]
     Active Substance: BACLOFEN
     Indication: PAIN
     Route: 037
     Dates: start: 20160325

REACTIONS (2)
  - Drug withdrawal syndrome [Unknown]
  - Drug intolerance [Unknown]

NARRATIVE: CASE EVENT DATE: 201603
